FAERS Safety Report 16411350 (Version 2)
Quarter: 2019Q2

REPORT INFORMATION
  Report Type: Spontaneous
  Country: US (occurrence: US)
  Receive Date: 20190610
  Receipt Date: 20190621
  Transmission Date: 20190711
  Serious: Yes (Other)
  Sender: FDA-Public Use
  Company Number: US-ASTRAZENECA-2018SF22290

PATIENT
  Age: 595 Month
  Sex: Female

DRUGS (45)
  1. OXYCODONE [Concomitant]
     Active Substance: OXYCODONE
  2. PHENTERMINE. [Concomitant]
     Active Substance: PHENTERMINE
  3. LYRICA [Concomitant]
     Active Substance: PREGABALIN
  4. HYDROMORPHONE [Concomitant]
     Active Substance: HYDROMORPHONE
  5. BENICAR [Concomitant]
     Active Substance: OLMESARTAN MEDOXOMIL
  6. LINZESS [Concomitant]
     Active Substance: LINACLOTIDE
  7. ADVAIR DISKUS [Concomitant]
     Active Substance: FLUTICASONE PROPIONATE\SALMETEROL XINAFOATE
  8. PRILOSEC [Suspect]
     Active Substance: OMEPRAZOLE MAGNESIUM
     Route: 048
     Dates: start: 199501, end: 201507
  9. ZOVIRAX [Concomitant]
     Active Substance: ACYCLOVIR
  10. TRAZODONE [Concomitant]
     Active Substance: TRAZODONE HYDROCHLORIDE
  11. OPANA [Concomitant]
     Active Substance: OXYMORPHONE HYDROCHLORIDE
  12. METHOTREXATE. [Concomitant]
     Active Substance: METHOTREXATE
  13. DIAZEPAM. [Concomitant]
     Active Substance: DIAZEPAM
  14. PROMETHAZINE [Concomitant]
     Active Substance: PROMETHAZINE\PROMETHAZINE HYDROCHLORIDE
  15. HYDROCHLOROTHIAZIDE. [Concomitant]
     Active Substance: HYDROCHLOROTHIAZIDE
  16. AMPHETAMINE [Concomitant]
     Active Substance: AMPHETAMINE
  17. BELSOMRA [Concomitant]
     Active Substance: SUVOREXANT
  18. NEXIUM [Suspect]
     Active Substance: ESOMEPRAZOLE MAGNESIUM
     Route: 048
     Dates: start: 199501, end: 201507
  19. ALPRAZOLAM. [Concomitant]
     Active Substance: ALPRAZOLAM
  20. MECLIZINE [Concomitant]
     Active Substance: MECLIZINE HYDROCHLORIDE
  21. ABILIFY [Concomitant]
     Active Substance: ARIPIPRAZOLE
  22. CLONIDINE. [Concomitant]
     Active Substance: CLONIDINE
  23. MONTELUKAST [Concomitant]
     Active Substance: MONTELUKAST SODIUM
  24. NEXIUM [Suspect]
     Active Substance: ESOMEPRAZOLE MAGNESIUM
     Route: 048
     Dates: start: 20080806, end: 20150223
  25. NEXIUM 24HR [Suspect]
     Active Substance: ESOMEPRAZOLE MAGNESIUM
     Route: 048
     Dates: start: 199501, end: 201507
  26. BISOPROLOL [Concomitant]
     Active Substance: BISOPROLOL
  27. ORPHENADRINE CITRATE. [Concomitant]
     Active Substance: ORPHENADRINE CITRATE
  28. PRENATAL [Concomitant]
     Active Substance: VITAMINS
  29. ROZEREM [Concomitant]
     Active Substance: RAMELTEON
  30. PREVACID [Suspect]
     Active Substance: LANSOPRAZOLE
     Route: 065
     Dates: start: 199501, end: 201507
  31. DEXTROAMPHETAMINE. [Concomitant]
     Active Substance: DEXTROAMPHETAMINE
  32. TOPIRAMATE. [Concomitant]
     Active Substance: TOPIRAMATE
  33. DICYCLOMINE [Concomitant]
     Active Substance: DICYCLOMINE HYDROCHLORIDE
  34. SIMVASTATIN. [Concomitant]
     Active Substance: SIMVASTATIN
  35. ARIPIPRAZOLE. [Concomitant]
     Active Substance: ARIPIPRAZOLE
  36. LABETALOL [Concomitant]
     Active Substance: LABETALOL\LABETALOL HYDROCHLORIDE
  37. CYCLOBENZAPRINE. [Concomitant]
     Active Substance: CYCLOBENZAPRINE
  38. ATENOLOL. [Concomitant]
     Active Substance: ATENOLOL
  39. PROTONIX [Suspect]
     Active Substance: PANTOPRAZOLE SODIUM
     Route: 065
     Dates: start: 199501, end: 201507
  40. OXYCONTIN [Concomitant]
     Active Substance: OXYCODONE HYDROCHLORIDE
  41. ONDANSETRON [Concomitant]
     Active Substance: ONDANSETRON
  42. CLONAZEPAM. [Concomitant]
     Active Substance: CLONAZEPAM
  43. SPIRONOLACTONE. [Concomitant]
     Active Substance: SPIRONOLACTONE
  44. MORPHINE SULFATE. [Concomitant]
     Active Substance: MORPHINE SULFATE
  45. FOLIC ACID. [Concomitant]
     Active Substance: FOLIC ACID

REACTIONS (6)
  - Dyspepsia [Unknown]
  - Acute kidney injury [Unknown]
  - Tubulointerstitial nephritis [Unknown]
  - Chronic kidney disease [Unknown]
  - End stage renal disease [Unknown]
  - Renal injury [Unknown]

NARRATIVE: CASE EVENT DATE: 201310
